FAERS Safety Report 21535607 (Version 1)
Quarter: 2022Q4

REPORT INFORMATION
  Report Type: Spontaneous
  Country: GH (occurrence: GH)
  Receive Date: 20221101
  Receipt Date: 20221101
  Transmission Date: 20230112
  Serious: Yes (Other)
  Sender: FDA-Public Use
  Company Number: GH-ABBVIE-4184050

PATIENT
  Sex: Female

DRUGS (3)
  1. ULTANE [Suspect]
     Active Substance: SEVOFLURANE
     Indication: Local anaesthesia
     Dosage: 3.5 - 4% MAC
     Route: 055
     Dates: start: 20221027, end: 20221027
  2. MORPHINE [Concomitant]
     Active Substance: MORPHINE
     Indication: Pain management
     Route: 042
     Dates: start: 20221027, end: 20221027
  3. ACETAMINOPHEN [Concomitant]
     Active Substance: ACETAMINOPHEN
     Indication: Pain management
     Route: 042
     Dates: start: 20221027, end: 20221027

REACTIONS (1)
  - Hypertension [Recovered/Resolved]

NARRATIVE: CASE EVENT DATE: 20221027
